FAERS Safety Report 26188984 (Version 1)
Quarter: 2025Q4

REPORT INFORMATION
  Report Type: Spontaneous
  Country: CN (occurrence: CN)
  Receive Date: 20251223
  Receipt Date: 20251223
  Transmission Date: 20260118
  Serious: Yes (Hospitalization)
  Sender: BEIGENE
  Company Number: CN-BEONEMEDICINES-BGN-2025-022609

PATIENT
  Age: 61 Year
  Sex: Male
  Weight: 65 kg

DRUGS (44)
  1. TISLELIZUMAB [Suspect]
     Active Substance: TISLELIZUMAB
     Indication: Squamous cell carcinoma of lung
     Dosage: 200 MILLIGRAM, Q3WK
     Dates: start: 20250211
  2. TISLELIZUMAB [Suspect]
     Active Substance: TISLELIZUMAB
     Indication: Metastases to the mediastinum
     Dosage: 200 MILLIGRAM, Q3WK
     Dates: start: 20250211
  3. TISLELIZUMAB [Suspect]
     Active Substance: TISLELIZUMAB
     Indication: Metastases to lymph nodes
     Dosage: 200 MILLIGRAM, Q3WK
     Route: 041
     Dates: start: 20250211
  4. TISLELIZUMAB [Suspect]
     Active Substance: TISLELIZUMAB
     Dosage: 200 MILLIGRAM, Q3WK
     Route: 041
     Dates: start: 20250211
  5. TISLELIZUMAB [Suspect]
     Active Substance: TISLELIZUMAB
     Dosage: 200 MILLIGRAM, Q3WK
     Dates: start: 20250308
  6. TISLELIZUMAB [Suspect]
     Active Substance: TISLELIZUMAB
     Dosage: 200 MILLIGRAM, Q3WK
     Dates: start: 20250308
  7. TISLELIZUMAB [Suspect]
     Active Substance: TISLELIZUMAB
     Dosage: 200 MILLIGRAM, Q3WK
     Route: 041
     Dates: start: 20250308
  8. TISLELIZUMAB [Suspect]
     Active Substance: TISLELIZUMAB
     Dosage: 200 MILLIGRAM, Q3WK
     Route: 041
     Dates: start: 20250308
  9. TISLELIZUMAB [Suspect]
     Active Substance: TISLELIZUMAB
     Dosage: 200 MILLIGRAM, Q3WK
     Dates: start: 20251010
  10. TISLELIZUMAB [Suspect]
     Active Substance: TISLELIZUMAB
     Dosage: 200 MILLIGRAM, Q3WK
     Route: 041
     Dates: start: 20251010
  11. TISLELIZUMAB [Suspect]
     Active Substance: TISLELIZUMAB
     Dosage: 200 MILLIGRAM, Q3WK
     Dates: start: 20251010
  12. TISLELIZUMAB [Suspect]
     Active Substance: TISLELIZUMAB
     Dosage: 200 MILLIGRAM, Q3WK
     Route: 041
     Dates: start: 20251010
  13. NEDAPLATIN [Suspect]
     Active Substance: NEDAPLATIN
     Indication: Squamous cell carcinoma of lung
     Dosage: 120 MILLIGRAM, Q3WK
     Route: 041
     Dates: start: 20250211
  14. NEDAPLATIN [Suspect]
     Active Substance: NEDAPLATIN
     Indication: Metastases to the mediastinum
     Dosage: 120 MILLIGRAM, Q3WK
     Dates: start: 20250211
  15. NEDAPLATIN [Suspect]
     Active Substance: NEDAPLATIN
     Indication: Metastases to lymph nodes
     Dosage: 120 MILLIGRAM, Q3WK
     Dates: start: 20250211
  16. NEDAPLATIN [Suspect]
     Active Substance: NEDAPLATIN
     Dosage: 120 MILLIGRAM, Q3WK
     Route: 041
     Dates: start: 20250211
  17. NEDAPLATIN [Suspect]
     Active Substance: NEDAPLATIN
     Dosage: 120 MILLIGRAM, Q3WK
     Route: 041
     Dates: start: 20250308
  18. NEDAPLATIN [Suspect]
     Active Substance: NEDAPLATIN
     Dosage: 120 MILLIGRAM, Q3WK
     Dates: start: 20250308
  19. NEDAPLATIN [Suspect]
     Active Substance: NEDAPLATIN
     Dosage: 120 MILLIGRAM, Q3WK
     Dates: start: 20250308
  20. NEDAPLATIN [Suspect]
     Active Substance: NEDAPLATIN
     Dosage: 120 MILLIGRAM, Q3WK
     Route: 041
     Dates: start: 20250308
  21. NEDAPLATIN [Suspect]
     Active Substance: NEDAPLATIN
     Dosage: 120 MILLIGRAM, Q3WK
     Dates: start: 20250711
  22. NEDAPLATIN [Suspect]
     Active Substance: NEDAPLATIN
     Dosage: 120 MILLIGRAM, Q3WK
     Dates: start: 20250711
  23. NEDAPLATIN [Suspect]
     Active Substance: NEDAPLATIN
     Dosage: 120 MILLIGRAM, Q3WK
     Route: 041
     Dates: start: 20250711
  24. NEDAPLATIN [Suspect]
     Active Substance: NEDAPLATIN
     Dosage: 120 MILLIGRAM, Q3WK
     Route: 041
     Dates: start: 20250711
  25. NEDAPLATIN [Suspect]
     Active Substance: NEDAPLATIN
     Dosage: 120 MILLIGRAM, Q3WK
     Dates: start: 20251010
  26. NEDAPLATIN [Suspect]
     Active Substance: NEDAPLATIN
     Dosage: 120 MILLIGRAM, Q3WK
     Dates: start: 20251010
  27. NEDAPLATIN [Suspect]
     Active Substance: NEDAPLATIN
     Dosage: 120 MILLIGRAM, Q3WK
     Route: 041
     Dates: start: 20251010
  28. NEDAPLATIN [Suspect]
     Active Substance: NEDAPLATIN
     Dosage: 120 MILLIGRAM, Q3WK
     Route: 041
     Dates: start: 20251010
  29. PACLITAXEL [Suspect]
     Active Substance: PACLITAXEL
     Indication: Squamous cell carcinoma of lung
     Dosage: 300 MILLIGRAM
     Route: 041
  30. PACLITAXEL [Suspect]
     Active Substance: PACLITAXEL
     Indication: Metastases to the mediastinum
     Dosage: 300 MILLIGRAM
  31. PACLITAXEL [Suspect]
     Active Substance: PACLITAXEL
     Indication: Metastases to lymph nodes
     Dosage: 300 MILLIGRAM
  32. PACLITAXEL [Suspect]
     Active Substance: PACLITAXEL
     Dosage: 300 MILLIGRAM
     Route: 041
  33. PACLITAXEL [Suspect]
     Active Substance: PACLITAXEL
     Dosage: 300 MILLIGRAM
     Route: 041
  34. PACLITAXEL [Suspect]
     Active Substance: PACLITAXEL
     Dosage: 300 MILLIGRAM
  35. PACLITAXEL [Suspect]
     Active Substance: PACLITAXEL
     Dosage: 300 MILLIGRAM
  36. PACLITAXEL [Suspect]
     Active Substance: PACLITAXEL
     Dosage: 300 MILLIGRAM
     Route: 041
  37. PACLITAXEL [Suspect]
     Active Substance: PACLITAXEL
     Dosage: 0.4 GRAM, Q3WK
     Dates: start: 20250711, end: 20250711
  38. PACLITAXEL [Suspect]
     Active Substance: PACLITAXEL
     Dosage: 0.4 GRAM, Q3WK
     Dates: start: 20250711, end: 20250711
  39. PACLITAXEL [Suspect]
     Active Substance: PACLITAXEL
     Dosage: 0.4 GRAM, Q3WK
     Route: 041
     Dates: start: 20250711, end: 20250711
  40. PACLITAXEL [Suspect]
     Active Substance: PACLITAXEL
     Dosage: 0.4 GRAM, Q3WK
     Route: 041
     Dates: start: 20250711, end: 20250711
  41. PACLITAXEL [Suspect]
     Active Substance: PACLITAXEL
     Dosage: 400 MILLIGRAM, Q3WK
     Dates: start: 20251010
  42. PACLITAXEL [Suspect]
     Active Substance: PACLITAXEL
     Dosage: 400 MILLIGRAM, Q3WK
     Dates: start: 20251010
  43. PACLITAXEL [Suspect]
     Active Substance: PACLITAXEL
     Dosage: 400 MILLIGRAM, Q3WK
     Route: 041
     Dates: start: 20251010
  44. PACLITAXEL [Suspect]
     Active Substance: PACLITAXEL
     Dosage: 400 MILLIGRAM, Q3WK
     Route: 041
     Dates: start: 20251010

REACTIONS (2)
  - Immune-mediated hepatitis [Recovering/Resolving]
  - Myelosuppression [Recovering/Resolving]

NARRATIVE: CASE EVENT DATE: 20251019
